FAERS Safety Report 4849214-7 (Version None)
Quarter: 2005Q4

REPORT INFORMATION
  Report Type: 
  Country: None (occurrence: None)
  Receive Date: 20051209
  Receipt Date: 20050625
  Transmission Date: 20060501
  Serious: Yes (Death)
  Sender: FDA-Public Use
  Company Number: US-MERCK-0506USA03574

PATIENT
  Age: 55 Year
  Sex: Female
  Weight: 91 kg

DRUGS (3)
  1. VIOXX [Suspect]
     Indication: RHEUMATOID ARTHRITIS
     Route: 048
     Dates: start: 20010717, end: 20030617
  2. AGGRENOX [Concomitant]
     Indication: PAIN
     Route: 065
  3. ASPIRIN [Concomitant]
     Route: 065
     Dates: start: 19850723, end: 20030617

REACTIONS (6)
  - ANXIETY [None]
  - DEATH [None]
  - DEPRESSION [None]
  - DIZZINESS [None]
  - MYOCARDIAL INFARCTION [None]
  - PANIC DISORDER [None]
